FAERS Safety Report 17299157 (Version 1)
Quarter: 2020Q1

REPORT INFORMATION
  Report Type: Report from Study
  Country: US (occurrence: US)
  Receive Date: 20200122
  Receipt Date: 20200122
  Transmission Date: 20200409
  Serious: Yes (Other)
  Sender: FDA-Public Use
  Company Number: US-UCBSA-2017020486

PATIENT
  Sex: Female

DRUGS (4)
  1. LACOSAMIDE. [Suspect]
     Active Substance: LACOSAMIDE
     Dosage: VIMPAT 200MG IN THE MORNING AND VIMPAT 150MG 2 TABLETS EVERY NIGHT BEFORE, 2X/DAY (BID)
     Route: 048
     Dates: start: 20200107
  2. LACOSAMIDE. [Suspect]
     Active Substance: LACOSAMIDE
     Indication: PARTIAL SEIZURES
     Dosage: VIMPAT 150MG 2 TABLET, 2X/DAY (BID)
     Route: 048
     Dates: start: 20180516
  3. LACOSAMIDE. [Suspect]
     Active Substance: LACOSAMIDE
     Indication: EPILEPSY
     Dosage: VIMPAT 200MG IN THE MORNING AND VIMPAT 150MG 2 TABLETS EVERY NIGHT BEFORE, 2X/DAY (BID)
     Route: 048
     Dates: end: 201805
  4. BRIVIACT [Suspect]
     Active Substance: BRIVARACETAM
     Indication: PRODUCT USED FOR UNKNOWN INDICATION
     Dosage: 100 MILLIGRAM, 2X/DAY (BID)

REACTIONS (3)
  - Off label use [Unknown]
  - Brain operation [Unknown]
  - Overdose [Unknown]
